FAERS Safety Report 8456408-0 (Version None)
Quarter: 2012Q2

REPORT INFORMATION
  Report Type: 
  Country: None (occurrence: None)
  Receive Date: 20120621
  Receipt Date: 20120615
  Transmission Date: 20120825
  Serious: Yes (Hospitalization)
  Sender: FDA-Public Use
  Company Number: DE-ROCHE-1079127

PATIENT
  Age: 48 Year
  Sex: Male
  Weight: 70 kg

DRUGS (3)
  1. PEGASYS [Suspect]
     Indication: HEPATITIS C
     Route: 058
     Dates: start: 20120119
  2. COPEGUS [Concomitant]
     Indication: HEPATITIS C
  3. TELAPREVIR [Concomitant]
     Indication: HEPATITIS C

REACTIONS (1)
  - UPPER LIMB FRACTURE [None]
